FAERS Safety Report 8520790 (Version 3)
Quarter: 2013Q3

REPORT INFORMATION
  Report Type: Spontaneous
  Country: US (occurrence: US)
  Receive Date: 20120419
  Receipt Date: 20130816
  Transmission Date: 20140515
  Serious: Yes (Hospitalization, Other)
  Sender: FDA-Public Use
  Company Number: US-ASTRAZENECA-2012SE11730

PATIENT
  Age: 45 Year
  Sex: Female
  Weight: 99.8 kg

DRUGS (24)
  1. NEXIUM [Suspect]
     Indication: GASTROOESOPHAGEAL REFLUX DISEASE
     Route: 048
     Dates: start: 2008, end: 201307
  2. PRILOSEC [Suspect]
     Indication: GASTROOESOPHAGEAL REFLUX DISEASE
     Route: 048
     Dates: start: 2003
  3. PRILOSEC [Suspect]
     Indication: GASTROOESOPHAGEAL REFLUX DISEASE
     Dosage: GENERIC
     Route: 048
  4. OMEPRAZOLE OTC [Suspect]
     Indication: GASTROOESOPHAGEAL REFLUX DISEASE
     Route: 048
  5. SINGULAIR [Concomitant]
     Indication: HYPERSENSITIVITY
  6. SALAGEN [Concomitant]
     Indication: DRY MOUTH
     Dosage: PRN
  7. XOPENEX HFA [Concomitant]
     Indication: ASTHMA
     Dosage: 2 PUFFS PRN
     Route: 055
     Dates: start: 2003
  8. AMBIEN [Concomitant]
     Indication: SLEEP DISORDER
     Route: 048
     Dates: start: 2011
  9. DEXMETHYLTHENIDATE [Concomitant]
     Indication: ASTHENIA
     Route: 048
     Dates: start: 201302
  10. VIMPAT [Concomitant]
     Indication: BURNING SENSATION
     Route: 048
     Dates: start: 2012
  11. NEURONTIN [Concomitant]
     Indication: PAIN
     Route: 048
     Dates: start: 2009
  12. LOSARTAN POTASSIUM [Concomitant]
     Indication: BLOOD PRESSURE ABNORMAL
     Route: 048
     Dates: start: 201301
  13. POTASSIUM [Concomitant]
     Indication: BLOOD POTASSIUM DECREASED
     Route: 048
     Dates: start: 201301
  14. CRANBERRY [Concomitant]
     Indication: BLADDER DISORDER
     Route: 048
  15. TYSABRI [Concomitant]
     Indication: MULTIPLE SCLEROSIS
     Dosage: Q4WK
     Route: 042
     Dates: start: 2009
  16. VITAMIN D3 [Concomitant]
     Indication: SUPPLEMENTATION THERAPY
     Route: 048
     Dates: start: 2009
  17. VITAMIN B [Concomitant]
     Indication: SUPPLEMENTATION THERAPY
     Dosage: DAILY
     Route: 048
     Dates: start: 2009
  18. LORATADINE [Concomitant]
     Indication: HYPERSENSITIVITY
     Dosage: OTC DAILY
     Route: 048
  19. FLUTICASONE [Concomitant]
     Indication: HYPERSENSITIVITY
     Dosage: 50MCG, 2 SPRAYS EACH NOSTRI DAILY
     Route: 045
  20. SIMVASTATIN [Concomitant]
     Indication: BLOOD CHOLESTEROL INCREASED
     Route: 048
  21. TOPAMAX [Concomitant]
     Route: 048
  22. CELEXA [Concomitant]
     Route: 048
  23. VALIUM [Concomitant]
     Indication: SLEEP DISORDER
     Route: 048
     Dates: start: 2012
  24. BENADRYL OTC [Concomitant]
     Indication: HYPERSENSITIVITY
     Route: 048

REACTIONS (15)
  - Hiatus hernia [Unknown]
  - Pneumonia [Unknown]
  - Blood potassium decreased [Unknown]
  - Blood magnesium decreased [Unknown]
  - Urinary tract infection [Unknown]
  - Chest pain [Unknown]
  - Multiple sclerosis [Unknown]
  - Asthma [Unknown]
  - Amnesia [Unknown]
  - Gastrooesophageal reflux disease [Unknown]
  - Weight increased [Unknown]
  - Malaise [Unknown]
  - Insomnia [Unknown]
  - Drug dose omission [Unknown]
  - Drug ineffective [Unknown]
